FAERS Safety Report 4892559-5 (Version None)
Quarter: 2006Q1

REPORT INFORMATION
  Report Type: 
  Country: None (occurrence: None)
  Receive Date: 20060126
  Receipt Date: 20050830
  Transmission Date: 20060701
  Serious: Yes (Other)
  Sender: FDA-Public Use
  Company Number: PHEH2005US09691

PATIENT
  Age: 75 Year
  Sex: Female
  Weight: 55.782 kg

DRUGS (6)
  1. ZOMETA [Suspect]
     Indication: MULTIPLE MYELOMA
     Dosage: 4 MG  MONTHLY
     Dates: start: 20021010, end: 20050720
  2. THALIDOMIDE [Concomitant]
     Indication: CHEMOTHERAPY
     Dosage: UNK,UNK
     Dates: start: 20040106, end: 20040603
  3. THALIDOMIDE [Concomitant]
     Dates: start: 20021010, end: 20050720
  4. DEXAMETHASONE TAB [Concomitant]
     Indication: CHEMOTHERAPY
     Dosage: UNK, UNK
     Dates: start: 20040106, end: 20040603
  5. DEXAMETHASONE TAB [Concomitant]
     Dosage: 4 MG 4 X/DAY FOR 4 DAYS EACH MONTH
     Dates: start: 20021010, end: 20030314
  6. PROCRIT [Concomitant]

REACTIONS (18)
  - BONE DEBRIDEMENT [None]
  - BONE DISORDER [None]
  - BONE LESION [None]
  - BONE TRIMMING [None]
  - FISTULA [None]
  - FISTULA REPAIR [None]
  - GINGIVAL INFECTION [None]
  - GINGIVAL OPERATION [None]
  - GINGIVAL ULCERATION [None]
  - IMPAIRED HEALING [None]
  - LIP ULCERATION [None]
  - MOUTH ULCERATION [None]
  - ORAL PAIN [None]
  - OSTEONECROSIS [None]
  - TONGUE ULCERATION [None]
  - TOOTH ABSCESS [None]
  - TOOTH EXTRACTION [None]
  - TOOTH INFECTION [None]
